FAERS Safety Report 25417820 (Version 1)
Quarter: 2025Q2

REPORT INFORMATION
  Report Type: Spontaneous
  Country: JP (occurrence: JP)
  Receive Date: 20250610
  Receipt Date: 20250610
  Transmission Date: 20250717
  Serious: Yes (Life-Threatening)
  Sender: MYLAN
  Company Number: JP-MYLANLABS-2025M1047745

PATIENT
  Age: 22 Year
  Sex: Female

DRUGS (16)
  1. EPIPEN [Suspect]
     Active Substance: EPINEPHRINE
     Indication: Anaphylactic reaction
  2. EPIPEN [Suspect]
     Active Substance: EPINEPHRINE
     Route: 030
  3. EPIPEN [Suspect]
     Active Substance: EPINEPHRINE
     Route: 030
  4. EPIPEN [Suspect]
     Active Substance: EPINEPHRINE
  5. CHLORPHENIRAMINE MALEATE [Suspect]
     Active Substance: CHLORPHENIRAMINE MALEATE
     Indication: Product used for unknown indication
  6. CHLORPHENIRAMINE MALEATE [Suspect]
     Active Substance: CHLORPHENIRAMINE MALEATE
     Route: 065
  7. CHLORPHENIRAMINE MALEATE [Suspect]
     Active Substance: CHLORPHENIRAMINE MALEATE
     Route: 065
  8. CHLORPHENIRAMINE MALEATE [Suspect]
     Active Substance: CHLORPHENIRAMINE MALEATE
  9. FAMOTIDINE [Suspect]
     Active Substance: FAMOTIDINE
     Indication: Product used for unknown indication
  10. FAMOTIDINE [Suspect]
     Active Substance: FAMOTIDINE
     Route: 065
  11. FAMOTIDINE [Suspect]
     Active Substance: FAMOTIDINE
     Route: 065
  12. FAMOTIDINE [Suspect]
     Active Substance: FAMOTIDINE
  13. HYDROCORTISONE SODIUM SUCCINATE [Suspect]
     Active Substance: HYDROCORTISONE SODIUM SUCCINATE
     Indication: Product used for unknown indication
  14. HYDROCORTISONE SODIUM SUCCINATE [Suspect]
     Active Substance: HYDROCORTISONE SODIUM SUCCINATE
     Route: 065
  15. HYDROCORTISONE SODIUM SUCCINATE [Suspect]
     Active Substance: HYDROCORTISONE SODIUM SUCCINATE
     Route: 065
  16. HYDROCORTISONE SODIUM SUCCINATE [Suspect]
     Active Substance: HYDROCORTISONE SODIUM SUCCINATE

REACTIONS (2)
  - Drug ineffective [Unknown]
  - Maternal exposure during pregnancy [Unknown]
